FAERS Safety Report 5883347-1 (Version None)
Quarter: 2008Q3

REPORT INFORMATION
  Report Type: 
  Country: None (occurrence: None)
  Receive Date: 20080912
  Receipt Date: 20080912
  Transmission Date: 20090109
  Serious: Yes (Other)
  Sender: FDA-Public Use
  Company Number: None

PATIENT
  Sex: Male
  Weight: 70.3075 kg

DRUGS (7)
  1. CRIXIVAN [Suspect]
  2. ZERIT [Suspect]
  3. EPIVIR [Suspect]
  4. SUSTIVA [Suspect]
  5. EPIVIR [Suspect]
  6. TRUVADA [Suspect]
  7. ATRIPLA [Suspect]

REACTIONS (2)
  - BODY FAT DISORDER [None]
  - LIPOMA [None]
